FAERS Safety Report 16252540 (Version 2)
Quarter: 2019Q2

REPORT INFORMATION
  Report Type: Spontaneous
  Country: CA (occurrence: CA)
  Receive Date: 20190429
  Receipt Date: 20190502
  Transmission Date: 20190711
  Serious: No
  Sender: FDA-Public Use
  Company Number: CA-PFIZER INC-2016518419

PATIENT
  Age: 54 Year
  Sex: Female

DRUGS (5)
  1. ADVIL [Concomitant]
     Active Substance: IBUPROFEN
     Dosage: 200MG-400MG PRN (AS NEEDED)
     Route: 048
  2. SOMATULINE [Concomitant]
     Active Substance: LANREOTIDE ACETATE
     Dosage: 120 MG, MONTHLY
  3. SOMAVERT [Suspect]
     Active Substance: PEGVISOMANT
     Indication: ACROMEGALY
     Dosage: 15 MG, DAILY
     Route: 058
     Dates: start: 20150805, end: 2016
  4. SOMAVERT [Suspect]
     Active Substance: PEGVISOMANT
     Dosage: 20 MG, DAILY
     Route: 058
     Dates: start: 2016
  5. SOMAVERT [Suspect]
     Active Substance: PEGVISOMANT
     Dosage: 25 MG, DAILY
     Route: 058

REACTIONS (2)
  - Therapeutic product effect incomplete [Recovered/Resolved]
  - Blood growth hormone increased [Recovered/Resolved]
